FAERS Safety Report 21687604 (Version 1)
Quarter: 2022Q4

REPORT INFORMATION
  Report Type: Spontaneous
  Country: US (occurrence: None)
  Receive Date: 20221205
  Receipt Date: 20221205
  Transmission Date: 20230113
  Serious: Yes (Other)
  Sender: FDA-Public Use
  Company Number: None

PATIENT
  Age: 53 Year
  Sex: Female
  Weight: 79.2 kg

DRUGS (17)
  1. PAXLOVID [Suspect]
     Active Substance: NIRMATRELVIR\RITONAVIR
     Indication: COVID-19
     Dates: start: 20221127, end: 20221202
  2. ADVAIR [Concomitant]
  3. UMECLIDINIUM BROMIDE [Concomitant]
     Active Substance: UMECLIDINIUM BROMIDE
  4. ALBUTEROL [Concomitant]
     Active Substance: ALBUTEROL
  5. MONTOLEUKAST [Concomitant]
  6. MOBIC [Concomitant]
     Active Substance: MELOXICAM
  7. LISINOPRIL [Concomitant]
     Active Substance: LISINOPRIL
  8. AMLODIPINE [Concomitant]
     Active Substance: AMLODIPINE BESYLATE
  9. BUSPIRONE [Concomitant]
     Active Substance: BUSPIRONE HYDROCHLORIDE
  10. ZYRTEC [Concomitant]
     Active Substance: CETIRIZINE HYDROCHLORIDE
  11. PROMETRIUM [Concomitant]
     Active Substance: PROGESTERONE
  12. TUMERIC [Concomitant]
  13. ADRENAL SUPPORT SUPPLEMENT [Concomitant]
  14. CHOLECALCIFEROL [Concomitant]
     Active Substance: CHOLECALCIFEROL
  15. HOT FLASH SUPPLEMENT [Concomitant]
  16. VITAMINS [Concomitant]
     Active Substance: VITAMINS
  17. MUCINEX [Concomitant]
     Active Substance: GUAIFENESIN

REACTIONS (8)
  - Psychotic disorder [None]
  - Hallucination, auditory [None]
  - Abnormal dreams [None]
  - Pruritus [None]
  - Thermal burns of eye [None]
  - Contusion [None]
  - Post-traumatic stress disorder [None]
  - Euphoric mood [None]

NARRATIVE: CASE EVENT DATE: 20221128
